FAERS Safety Report 13152798 (Version 2)
Quarter: 2017Q1

REPORT INFORMATION
  Report Type: Spontaneous
  Country: US (occurrence: US)
  Receive Date: 20170125
  Receipt Date: 20170223
  Transmission Date: 20170428
  Serious: No
  Sender: FDA-Public Use
  Company Number: PHEH2017US002052

PATIENT
  Sex: Female

DRUGS (1)
  1. GLEEVEC [Suspect]
     Active Substance: IMATINIB MESYLATE
     Indication: PRODUCT USED FOR UNKNOWN INDICATION
     Dosage: 100 MG, UNK
     Route: 065

REACTIONS (7)
  - Eye pruritus [Unknown]
  - Product quality issue [Unknown]
  - Diarrhoea [Unknown]
  - Erythema [Unknown]
  - Eye swelling [Not Recovered/Not Resolved]
  - Nausea [Unknown]
  - Pruritus [Unknown]
